FAERS Safety Report 9137762 (Version 2)
Quarter: 2013Q2

REPORT INFORMATION
  Report Type: Spontaneous
  Country: IT (occurrence: IT)
  Receive Date: 20130304
  Receipt Date: 20130516
  Transmission Date: 20140414
  Serious: Yes (Hospitalization)
  Sender: FDA-Public Use
  Company Number: IT-ELI_LILLY_AND_COMPANY-IT201302008539

PATIENT
  Age: 54 Year
  Sex: Male

DRUGS (3)
  1. HUMALOG LISPRO - NPL [Suspect]
     Dosage: 6 IU, QD
     Route: 058
     Dates: start: 20120113, end: 20130112
  2. HUMALOG LISPRO [Suspect]
     Dosage: 10 IU, QD
     Route: 058
     Dates: start: 20120113, end: 20130112
  3. METFORMIN [Concomitant]
     Dosage: 2550 MG, QD
     Route: 048
     Dates: start: 20120113, end: 20130112

REACTIONS (1)
  - Hypoglycaemic coma [Recovering/Resolving]
